FAERS Safety Report 6594936-3 (Version None)
Quarter: 2010Q1

REPORT INFORMATION
  Report Type: 
  Country: None (occurrence: None)
  Receive Date: 20100222
  Receipt Date: 20100212
  Transmission Date: 20100710
  Serious: Yes (Other)
  Sender: FDA-Public Use
  Company Number: US-PFIZER INC-2010020221

PATIENT
  Sex: Male
  Weight: 85.714 kg

DRUGS (3)
  1. CHANTIX [Suspect]
     Indication: SMOKING CESSATION THERAPY
     Route: 048
     Dates: start: 20100205
  2. SUBUTEX [Concomitant]
     Dosage: UNK
  3. PROZAC [Concomitant]
     Dosage: UNK

REACTIONS (4)
  - PSYCHOTIC DISORDER [None]
  - RENAL PAIN [None]
  - SELF-INJURIOUS IDEATION [None]
  - TREMOR [None]
